FAERS Safety Report 19780691 (Version 1)
Quarter: 2021Q3

REPORT INFORMATION
  Report Type: Report from Study
  Country: FR (occurrence: FR)
  Receive Date: 20210902
  Receipt Date: 20210902
  Transmission Date: 20211014
  Serious: Yes (Hospitalization, Other)
  Sender: FDA-Public Use
  Company Number: FR-TAKEDA-FR201924184

PATIENT
  Age: 70 Year
  Sex: Female
  Weight: 60 kg

DRUGS (41)
  1. TEDUGLUTIDE [Suspect]
     Active Substance: TEDUGLUTIDE
     Dosage: 3.0 MILLIGRAM (TED DAILY DOSE MG KG 0.05, TED DOSES PER WEEK 7)
     Route: 065
     Dates: start: 20160902, end: 201702
  2. TEDUGLUTIDE [Suspect]
     Active Substance: TEDUGLUTIDE
     Dosage: 1.6 MILLIGRAM (0.05 MG/KG DAILY DOSE), 7 DOSES PER WEEK
     Route: 065
     Dates: start: 20190221, end: 20190301
  3. TEDUGLUTIDE [Suspect]
     Active Substance: TEDUGLUTIDE
     Dosage: 3.2 MILLIGRAM (0.05 MG/KG DAILY DOSE), 7 DOSES PER WEEK
     Route: 065
     Dates: start: 202012, end: 202105
  4. TEDUGLUTIDE [Suspect]
     Active Substance: TEDUGLUTIDE
     Dosage: 1.6 MILLIGRAM (0.0250 MG/KG DAILY DOSE), 7 DOSES PER WEEK
     Route: 065
     Dates: start: 202105
  5. MOVYMIA [Concomitant]
     Indication: FRACTURE
     Dosage: 1 INJECTION, QD
     Route: 058
     Dates: start: 20200102
  6. TEDUGLUTIDE [Suspect]
     Active Substance: TEDUGLUTIDE
     Dosage: 3.4 MILLIGRAM (0.05 MG/KG DAILY DOSE), 7 DOSES PER WEEK
     Route: 065
     Dates: start: 201903, end: 201908
  7. LEVOTHYROX [Concomitant]
     Active Substance: LEVOTHYROXINE
     Indication: HYPOTHYROIDISM
     Dosage: UNK
     Route: 065
  8. TEDUGLUTIDE [Suspect]
     Active Substance: TEDUGLUTIDE
     Indication: SHORT-BOWEL SYNDROME
     Dosage: 3.8 MILLIGRAM (TED DAILY DOSE MG KG 0.05, TED DOSES PER WEEK 7)
     Route: 065
     Dates: start: 20160227, end: 20160901
  9. TEDUGLUTIDE [Suspect]
     Active Substance: TEDUGLUTIDE
     Dosage: 1.6 MILLIGRAM (0.05 MG/KG DAILY DOSE), 7 DOSES PER WEEK
     Route: 065
     Dates: start: 20190221, end: 20190301
  10. TEDUGLUTIDE [Suspect]
     Active Substance: TEDUGLUTIDE
     Dosage: 3 MILLIGRAM (0.05 MG/KG DAILY DOSE), 7 DOSES PER WEEK
     Route: 065
     Dates: start: 201908, end: 202012
  11. TEDUGLUTIDE [Suspect]
     Active Substance: TEDUGLUTIDE
     Dosage: 3.2 MILLIGRAM (0.05 MG/KG DAILY DOSE), 7 DOSES PER WEEK
     Route: 065
     Dates: start: 202012, end: 202105
  12. TEDUGLUTIDE [Suspect]
     Active Substance: TEDUGLUTIDE
     Indication: SHORT-BOWEL SYNDROME
     Dosage: 3.8 MILLIGRAM (TED DAILY DOSE MG KG 0.05, TED DOSES PER WEEK 7)
     Route: 065
     Dates: start: 20160227, end: 20160901
  13. TEDUGLUTIDE [Suspect]
     Active Substance: TEDUGLUTIDE
     Dosage: 3.4 MILLIGRAM (TED DAILY DOSE MG KG 0.05, TED DOSES PER WEEK 7)
     Route: 065
     Dates: start: 20170914, end: 20190220
  14. TEDUGLUTIDE [Suspect]
     Active Substance: TEDUGLUTIDE
     Dosage: 1.6 MILLIGRAM (0.05 MG/KG DAILY DOSE), 7 DOSES PER WEEK
     Route: 065
     Dates: start: 20190221, end: 20190301
  15. TEDUGLUTIDE [Suspect]
     Active Substance: TEDUGLUTIDE
     Dosage: 3.2 MILLIGRAM (0.05 MG/KG DAILY DOSE), 7 DOSES PER WEEK
     Route: 065
     Dates: start: 202012, end: 202105
  16. TEDUGLUTIDE [Suspect]
     Active Substance: TEDUGLUTIDE
     Dosage: 1.6 MILLIGRAM (0.0250 MG/KG DAILY DOSE), 7 DOSES PER WEEK
     Route: 065
     Dates: start: 202105
  17. ZYMAD [Concomitant]
     Active Substance: CHOLECALCIFEROL
     Indication: OSTEOMALACIA
     Dosage: 7 GTT DROPS, QD
     Route: 048
     Dates: start: 20180629
  18. TEDUGLUTIDE [Suspect]
     Active Substance: TEDUGLUTIDE
     Dosage: 3.0 MILLIGRAM (TED DAILY DOSE MG KG 0.05, TED DOSES PER WEEK 7)
     Route: 065
     Dates: start: 20160902, end: 201702
  19. TEDUGLUTIDE [Suspect]
     Active Substance: TEDUGLUTIDE
     Dosage: 3.0 MILLIGRAM (TED DAILY DOSE MG KG 0.05, TED DOSES PER WEEK 7)
     Route: 065
     Dates: start: 20160902, end: 201702
  20. TEDUGLUTIDE [Suspect]
     Active Substance: TEDUGLUTIDE
     Dosage: 3.2 MILLIGRAM (TED DAILY DOSE MG KG 0.05, TED DOSES PER WEEK 7)
     Route: 065
     Dates: start: 201702, end: 20170913
  21. TEDUGLUTIDE [Suspect]
     Active Substance: TEDUGLUTIDE
     Dosage: 3.4 MILLIGRAM (TED DAILY DOSE MG KG 0.05, TED DOSES PER WEEK 7)
     Route: 065
     Dates: start: 20170914, end: 20190220
  22. TEDUGLUTIDE [Suspect]
     Active Substance: TEDUGLUTIDE
     Dosage: 3.4 MILLIGRAM (0.05 MG/KG DAILY DOSE), 7 DOSES PER WEEK
     Route: 065
     Dates: start: 201903, end: 201908
  23. TEDUGLUTIDE [Suspect]
     Active Substance: TEDUGLUTIDE
     Dosage: 3 MILLIGRAM (0.05 MG/KG DAILY DOSE), 7 DOSES PER WEEK
     Route: 065
     Dates: start: 201908, end: 202012
  24. TEDUGLUTIDE [Suspect]
     Active Substance: TEDUGLUTIDE
     Dosage: 3 MILLIGRAM (0.05 MG/KG DAILY DOSE), 7 DOSES PER WEEK
     Route: 065
     Dates: start: 201908, end: 202012
  25. TEDUGLUTIDE [Suspect]
     Active Substance: TEDUGLUTIDE
     Dosage: 3 MILLIGRAM (0.05 MG/KG DAILY DOSE), 7 DOSES PER WEEK
     Route: 065
     Dates: start: 201908, end: 202012
  26. TEDUGLUTIDE [Suspect]
     Active Substance: TEDUGLUTIDE
     Dosage: 3.2 MILLIGRAM (0.05 MG/KG DAILY DOSE), 7 DOSES PER WEEK
     Route: 065
     Dates: start: 202012, end: 202105
  27. TEDUGLUTIDE [Suspect]
     Active Substance: TEDUGLUTIDE
     Dosage: 1.6 MILLIGRAM (0.0250 MG/KG DAILY DOSE), 7 DOSES PER WEEK
     Route: 065
     Dates: start: 202105
  28. TEDUGLUTIDE [Suspect]
     Active Substance: TEDUGLUTIDE
     Dosage: 1.6 MILLIGRAM (0.0250 MG/KG DAILY DOSE), 7 DOSES PER WEEK
     Route: 065
     Dates: start: 202105
  29. TEDUGLUTIDE [Suspect]
     Active Substance: TEDUGLUTIDE
     Indication: SHORT-BOWEL SYNDROME
     Dosage: 3.8 MILLIGRAM (TED DAILY DOSE MG KG 0.05, TED DOSES PER WEEK 7)
     Route: 065
     Dates: start: 20160227, end: 20160901
  30. TEDUGLUTIDE [Suspect]
     Active Substance: TEDUGLUTIDE
     Dosage: 1.6 MILLIGRAM (0.05 MG/KG DAILY DOSE), 7 DOSES PER WEEK
     Route: 065
     Dates: start: 20190221, end: 20190301
  31. UVEDOSE [Concomitant]
     Active Substance: CHOLECALCIFEROL
     Indication: FRACTURE
     Dosage: 1 DOSAGE FORM, MONTHLY
     Route: 048
     Dates: start: 201611, end: 201806
  32. TEDUGLUTIDE [Suspect]
     Active Substance: TEDUGLUTIDE
     Indication: SHORT-BOWEL SYNDROME
     Dosage: 3.8 MILLIGRAM (TED DAILY DOSE MG KG 0.05, TED DOSES PER WEEK 7)
     Route: 065
     Dates: start: 20160227, end: 20160901
  33. TEDUGLUTIDE [Suspect]
     Active Substance: TEDUGLUTIDE
     Dosage: 3.0 MILLIGRAM (TED DAILY DOSE MG KG 0.05, TED DOSES PER WEEK 7)
     Route: 065
     Dates: start: 20160902, end: 201702
  34. TEDUGLUTIDE [Suspect]
     Active Substance: TEDUGLUTIDE
     Dosage: 3.2 MILLIGRAM (TED DAILY DOSE MG KG 0.05, TED DOSES PER WEEK 7)
     Route: 065
     Dates: start: 201702, end: 20170913
  35. TEDUGLUTIDE [Suspect]
     Active Substance: TEDUGLUTIDE
     Dosage: 3.2 MILLIGRAM (TED DAILY DOSE MG KG 0.05, TED DOSES PER WEEK 7)
     Route: 065
     Dates: start: 201702, end: 20170913
  36. TEDUGLUTIDE [Suspect]
     Active Substance: TEDUGLUTIDE
     Dosage: 3.4 MILLIGRAM (TED DAILY DOSE MG KG 0.05, TED DOSES PER WEEK 7)
     Route: 065
     Dates: start: 20170914, end: 20190220
  37. TEDUGLUTIDE [Suspect]
     Active Substance: TEDUGLUTIDE
     Dosage: 3.4 MILLIGRAM (TED DAILY DOSE MG KG 0.05, TED DOSES PER WEEK 7)
     Route: 065
     Dates: start: 20170914, end: 20190220
  38. TEDUGLUTIDE [Suspect]
     Active Substance: TEDUGLUTIDE
     Dosage: 3.4 MILLIGRAM (0.05 MG/KG DAILY DOSE), 7 DOSES PER WEEK
     Route: 065
     Dates: start: 201903, end: 201908
  39. L?THYROXINE [LEVOTHYROXINE SODIUM] [Concomitant]
     Active Substance: LEVOTHYROXINE SODIUM
     Indication: HYPOTHYROIDISM
     Dosage: 43 GTT DROPS, QD
     Route: 048
     Dates: start: 20180222
  40. TEDUGLUTIDE [Suspect]
     Active Substance: TEDUGLUTIDE
     Dosage: 3.2 MILLIGRAM (TED DAILY DOSE MG KG 0.05, TED DOSES PER WEEK 7)
     Route: 065
     Dates: start: 201702, end: 20170913
  41. TEDUGLUTIDE [Suspect]
     Active Substance: TEDUGLUTIDE
     Dosage: 3.4 MILLIGRAM (0.05 MG/KG DAILY DOSE), 7 DOSES PER WEEK
     Route: 065
     Dates: start: 201903, end: 201908

REACTIONS (5)
  - Decreased appetite [Recovered/Resolved]
  - Hypokalaemia [Recovered/Resolved]
  - Acute kidney injury [Not Recovered/Not Resolved]
  - Dehydration [Recovered/Resolved]
  - Renal failure [Recovered/Resolved]

NARRATIVE: CASE EVENT DATE: 201902
